FAERS Safety Report 17530999 (Version 1)
Quarter: 2020Q1

REPORT INFORMATION
  Report Type: Spontaneous
  Country: NZ (occurrence: NZ)
  Receive Date: 20200312
  Receipt Date: 20200312
  Transmission Date: 20200409
  Serious: Yes (Death, Other)
  Sender: FDA-Public Use
  Company Number: NZ-MYLANLABS-2020M1026274

PATIENT
  Age: 35 Year
  Sex: Female

DRUGS (1)
  1. LOGEM [Suspect]
     Active Substance: LAMOTRIGINE
     Indication: SEIZURE
     Dosage: UNK
     Dates: start: 2019

REACTIONS (2)
  - Death [Fatal]
  - Product substitution issue [Unknown]

NARRATIVE: CASE EVENT DATE: 2019
